FAERS Safety Report 8272519 (Version 4)
Quarter: 2013Q2

REPORT INFORMATION
  Report Type: Spontaneous
  Country: US (occurrence: US)
  Receive Date: 20111122
  Receipt Date: 20120426
  Transmission Date: 20140414
  Serious: Yes (Other)
  Sender: FDA-Public Use
  Company Number: PHHY2011US55694

PATIENT
  Age: 51 Year
  Sex: Female
  Weight: 71.66 kg

DRUGS (16)
  1. GILENYA [Suspect]
     Indication: MULTIPLE SCLEROSIS
     Dosage: 0.5 MG, QD
     Route: 048
     Dates: start: 20110609
  2. GLUCOPHAGE [Concomitant]
     Dosage: 500 MG, UNK
  3. SYNTHROID [Concomitant]
     Dosage: 25 MG, UNK
  4. LOTENSIN [Concomitant]
     Dosage: 5 MG, QD
  5. ULTRACET [Concomitant]
     Dosage: 37.5-325 UKN, PRN
  6. ESTRADIOL [Concomitant]
  7. ZOCOR [Concomitant]
     Dosage: 20 MG, UNK
  8. LYRICA [Concomitant]
     Dosage: 100 MG, TID
  9. ALPHA LIPOIC ACID [Concomitant]
     Dosage: 600 MG, TID
  10. METANX [Concomitant]
  11. CYMBALTA [Concomitant]
     Dosage: 30 MG, QHS
  12. COREG [Concomitant]
     Dosage: 20 MG, BID
  13. ROBAXIN [Concomitant]
     Dosage: 500 MG, UNK
  14. BENAZEPLUS [Concomitant]
     Dosage: 5-6.25 UKN, UNK
  15. NEXIUM [Concomitant]
     Dosage: 20 MG, UNK
  16. CALCIUM [Concomitant]
     Dosage: 500 DF, UNK

REACTIONS (14)
  - Muscular weakness [Unknown]
  - Hyperchlorhydria [Recovering/Resolving]
  - Nasal congestion [Unknown]
  - Dysgeusia [Recovering/Resolving]
  - Local swelling [Not Recovered/Not Resolved]
  - Nausea [Not Recovered/Not Resolved]
  - Pain in extremity [Not Recovered/Not Resolved]
  - Fall [Unknown]
  - Back pain [Recovering/Resolving]
  - Headache [Not Recovered/Not Resolved]
  - Dizziness [Unknown]
  - Tinea infection [Unknown]
  - Diarrhoea [Unknown]
  - Hyperchlorhydria [None]
